FAERS Safety Report 8364993-2 (Version None)
Quarter: 2012Q2

REPORT INFORMATION
  Report Type: 
  Country: None (occurrence: None)
  Receive Date: 20120516
  Receipt Date: 20120510
  Transmission Date: 20120825
  Serious: Yes (Other)
  Sender: FDA-Public Use
  Company Number: US-GLAXOSMITHKLINE-A0975155A

PATIENT
  Age: 87 Year
  Sex: Female

DRUGS (14)
  1. MAGNESIUM HYDROXIDE TAB [Concomitant]
  2. BETA BLOCKER [Concomitant]
  3. FLUCONAZOLE [Concomitant]
  4. BACITRACIN [Concomitant]
  5. METFORMIN HCL [Concomitant]
  6. INSULIN [Concomitant]
  7. PROZAC [Concomitant]
  8. OXYCODONE HCL [Concomitant]
  9. MULTI-VITAMIN [Concomitant]
  10. NEOMYCIN SULFATE TAB [Concomitant]
  11. POLYMYXIN [Concomitant]
  12. PAROXETINE [Suspect]
     Indication: PRODUCT USED FOR UNKNOWN INDICATION
     Dosage: 10MG PER DAY
     Route: 048
     Dates: start: 20120410, end: 20120419
  13. UNSPECIFIED MEDICATION [Concomitant]
  14. HYDROCODONE BITARTRATE + ACETAMINOPHEN [Concomitant]

REACTIONS (9)
  - NEUROPATHY PERIPHERAL [None]
  - DISTURBANCE IN ATTENTION [None]
  - CONDITION AGGRAVATED [None]
  - CRYING [None]
  - FEELING ABNORMAL [None]
  - DYSARTHRIA [None]
  - SUFFOCATION FEELING [None]
  - CONVULSION [None]
  - HEADACHE [None]
